FAERS Safety Report 15969386 (Version 1)
Quarter: 2019Q1

REPORT INFORMATION
  Report Type: Spontaneous
  Country: US (occurrence: US)
  Receive Date: 20190215
  Receipt Date: 20190215
  Transmission Date: 20190418
  Serious: No
  Sender: FDA-Public Use
  Company Number: PHHY2019US036774

PATIENT
  Age: 68 Year
  Sex: Male

DRUGS (1)
  1. DICLOFENAC SODIUM. [Suspect]
     Active Substance: DICLOFENAC SODIUM
     Indication: PLANTAR FASCIITIS
     Dosage: UNK UNK, QD
     Route: 061

REACTIONS (4)
  - Contraindicated product administered [Unknown]
  - Off label use [Unknown]
  - Product administered at inappropriate site [Unknown]
  - Blood pressure increased [Unknown]
